FAERS Safety Report 18640519 (Version 1)
Quarter: 2020Q4

REPORT INFORMATION
  Report Type: Spontaneous
  Country: US (occurrence: US)
  Receive Date: 20201221
  Receipt Date: 20201221
  Transmission Date: 20210114
  Serious: Yes (Death, Other)
  Sender: FDA-Public Use
  Company Number: US-SA-2020SA362845

PATIENT

DRUGS (1)
  1. ZANTAC [Suspect]
     Active Substance: RANITIDINE HYDROCHLORIDE
     Indication: DYSPEPSIA
     Dosage: 75 MG, QD
     Dates: start: 201703, end: 201807

REACTIONS (3)
  - Gastric cancer stage IV [Fatal]
  - Colorectal cancer [Fatal]
  - Oesophageal carcinoma [Fatal]

NARRATIVE: CASE EVENT DATE: 20190701
